FAERS Safety Report 8118946-X (Version None)
Quarter: 2012Q1

REPORT INFORMATION
  Report Type: 
  Country: None (occurrence: None)
  Receive Date: 20120207
  Receipt Date: 20120202
  Transmission Date: 20120608
  Serious: No
  Sender: FDA-Public Use
  Company Number: US-PFIZER INC-2012029308

PATIENT
  Sex: Female
  Weight: 13 kg

DRUGS (1)
  1. GENOTROPIN [Suspect]
     Indication: DWARFISM
     Dosage: 0.5 MG, DAILY
     Dates: start: 20110623, end: 20120101

REACTIONS (4)
  - BODY FAT DISORDER [None]
  - LIPOATROPHY [None]
  - ABDOMINAL DISTENSION [None]
  - APPETITE DISORDER [None]
